FAERS Safety Report 6232690-5 (Version None)
Quarter: 2009Q2

REPORT INFORMATION
  Report Type: 
  Country: None (occurrence: None)
  Receive Date: 20090617
  Receipt Date: 20090612
  Transmission Date: 20091009
  Serious: Yes (Other)
  Sender: FDA-Public Use
  Company Number: US-PFIZER INC-2009221742

PATIENT
  Sex: Female

DRUGS (1)
  1. NICOTROL [Suspect]
     Dates: start: 20090517, end: 20090101

REACTIONS (2)
  - GINGIVAL BLISTER [None]
  - STOMATITIS [None]
